FAERS Safety Report 7988877-4 (Version None)
Quarter: 2011Q4

REPORT INFORMATION
  Report Type: 
  Country: None (occurrence: None)
  Receive Date: 20111215
  Receipt Date: 20111215
  Transmission Date: 20120403
  Serious: Yes (Life-Threatening, Disabling, Other)
  Sender: FDA-Public Use
  Company Number: None

PATIENT
  Sex: Female

DRUGS (2)
  1. BENADRYL [Suspect]
     Indication: DYSPHONIA
     Dosage: 100 MG ONCE SHOT
     Dates: start: 20111121
  2. PROLIXIN [Suspect]
     Indication: DYSPHONIA
     Dosage: 10 MG. ONCE SHOT
     Dates: start: 20111121

REACTIONS (2)
  - DYSKINESIA [None]
  - DRUG HYPERSENSITIVITY [None]
